FAERS Safety Report 9554485 (Version 3)
Quarter: 2014Q1

REPORT INFORMATION
  Report Type: Report from Study
  Country: FR (occurrence: FR)
  Receive Date: 20130925
  Receipt Date: 20140224
  Transmission Date: 20141002
  Serious: Yes (Hospitalization, Other)
  Sender: FDA-Public Use
  Company Number: FR-EXELIXIS-XL18413003245

PATIENT
  Age: 67 Year
  Sex: Male

DRUGS (16)
  1. XL184 [Suspect]
     Indication: PROSTATE CANCER
     Dosage: 60 MG, QD
     Route: 048
     Dates: start: 20130617, end: 20130901
  2. XL184 [Suspect]
     Dosage: 60 MG, QD
     Route: 048
     Dates: start: 20130906
  3. XL184 [Suspect]
     Indication: PROSTATE CANCER
     Dosage: 5 MG, BID
     Route: 048
     Dates: start: 20130617, end: 20130901
  4. XL184 [Suspect]
     Dosage: 3 MG, BID
     Route: 048
     Dates: start: 20130906
  5. APROVEL [Concomitant]
  6. JANUMET [Concomitant]
  7. NORSET [Concomitant]
  8. FENTANYL [Concomitant]
  9. ZOMETA [Concomitant]
  10. PREDNISONE [Concomitant]
  11. ENANTONE [Concomitant]
  12. SEREVENT [Concomitant]
  13. MEPITEL [Concomitant]
  14. SKENAN [Concomitant]
  15. ACTISKENAN [Concomitant]
  16. ZOCOR [Concomitant]

REACTIONS (2)
  - Dyskinesia [Recovered/Resolved]
  - Atrial fibrillation [Recovered/Resolved]
